FAERS Safety Report 4803861-7 (Version None)
Quarter: 2005Q4

REPORT INFORMATION
  Report Type: 
  Country: None (occurrence: None)
  Receive Date: 20051014
  Receipt Date: 20051004
  Transmission Date: 20060501
  Serious: Yes (Other)
  Sender: FDA-Public Use
  Company Number: 218307

PATIENT
  Age: 46 Year
  Sex: Female

DRUGS (11)
  1. RITUXAN [Suspect]
     Indication: NON-HODGKIN'S LYMPHOMA
     Dosage: 525 MG, INTRAVENOUS
     Route: 042
     Dates: start: 20020122, end: 20020212
  2. DOXORUBICIN HYDROCHLORIDE [Suspect]
     Indication: NON-HODGKIN'S LYMPHOMA
     Dosage: 70 MG, INTRAVENOUS
     Route: 042
     Dates: start: 20020124, end: 20020214
  3. CYCLOPHOSPHAMIDE [Suspect]
     Indication: NON-HODGKIN'S LYMPHOMA
     Dosage: 1050 MG, INTRAVENOUS
     Route: 042
     Dates: start: 20020124, end: 20020214
  4. VINCRISTINE [Suspect]
     Indication: NON-HODGKIN'S LYMPHOMA
     Dosage: 1.96 MG, INTRAVENOUS
     Route: 042
     Dates: start: 20020124, end: 20020214
  5. PREDNISONE [Suspect]
     Indication: NON-HODGKIN'S LYMPHOMA
     Dosage: 100 MG, ORAL
     Route: 048
     Dates: start: 20020124, end: 20020214
  6. SCOPOLAMINE (SCOPOLAMINE NOS) [Concomitant]
  7. PENTAZOCINE LACTATE [Concomitant]
  8. HYDROCORTISONE SODIUM SUCCINATE [Concomitant]
  9. DOMPERIDONE (DOMPERIDONE) [Concomitant]
  10. POLARAMINE [Concomitant]
  11. LOXONIN (LOXOPROFEN SODIUM) [Concomitant]

REACTIONS (4)
  - ABDOMINAL PAIN [None]
  - LEUKOPENIA [None]
  - NAUSEA [None]
  - NEUTROPHIL PERCENTAGE DECREASED [None]
